FAERS Safety Report 4314229-4 (Version None)
Quarter: 2004Q1

REPORT INFORMATION
  Report Type: 
  Country: None (occurrence: None)
  Receive Date: 20040309
  Receipt Date: 20040309
  Transmission Date: 20041129
  Serious: Yes (Hospitalization)
  Sender: FDA-Public Use
  Company Number: None

PATIENT
  Age: 52 Year
  Sex: Male
  Weight: 69.4003 kg

DRUGS (1)
  1. BIAXIN [Suspect]
     Dosage: 1 EVERY 12 H ORAL
     Route: 048

REACTIONS (9)
  - CONFUSIONAL STATE [None]
  - DISORIENTATION [None]
  - DIZZINESS [None]
  - INSOMNIA [None]
  - NAUSEA [None]
  - NIGHTMARE [None]
  - TREMOR [None]
  - VERTIGO [None]
  - VOMITING [None]
